FAERS Safety Report 12973491 (Version 1)
Quarter: 2016Q4

REPORT INFORMATION
  Report Type: Spontaneous
  Country: US (occurrence: US)
  Receive Date: 20161124
  Receipt Date: 20161124
  Transmission Date: 20170207
  Serious: No
  Sender: FDA-Public Use
  Company Number: US-ASTRAZENECA-2016SF14071

PATIENT
  Age: 28372 Day
  Sex: Female
  Weight: 63.5 kg

DRUGS (2)
  1. SYMBICORT [Suspect]
     Active Substance: BUDESONIDE\FORMOTEROL FUMARATE DIHYDRATE
     Indication: OBSTRUCTIVE AIRWAYS DISORDER
     Dosage: 80/4.5MCG, 2 PUFFS TWICE A DAY
     Route: 055
     Dates: start: 20161025, end: 20161026
  2. SYMBICORT [Suspect]
     Active Substance: BUDESONIDE\FORMOTEROL FUMARATE DIHYDRATE
     Indication: CHRONIC OBSTRUCTIVE PULMONARY DISEASE
     Dosage: 80/4.5MCG, 2 PUFFS TWICE A DAY
     Route: 055
     Dates: start: 20161025, end: 20161026

REACTIONS (4)
  - Dyspnoea [Unknown]
  - Mass excision [Unknown]
  - Off label use [Recovered/Resolved]
  - Blood pressure decreased [Unknown]

NARRATIVE: CASE EVENT DATE: 20161025
